FAERS Safety Report 18098656 (Version 1)
Quarter: 2020Q3

REPORT INFORMATION
  Report Type: Spontaneous
  Country: CA (occurrence: CA)
  Receive Date: 20200731
  Receipt Date: 20200731
  Transmission Date: 20201103
  Serious: Yes (Life-Threatening, Hospitalization, Other)
  Sender: FDA-Public Use
  Company Number: CA-ASTRAZENECA-2020SE94793

PATIENT
  Age: 75 Year
  Sex: Female

DRUGS (13)
  1. FERROUS FUMARATE [Concomitant]
     Active Substance: FERROUS FUMARATE
  2. NADOLOL. [Concomitant]
     Active Substance: NADOLOL
  3. NOVOLIN NOS [Concomitant]
     Active Substance: INSULIN HUMAN
     Route: 030
  4. VITAMIN D [Concomitant]
     Active Substance: VITAMIN D NOS
  5. JANUMET XR [Concomitant]
     Active Substance: METFORMIN HYDROCHLORIDE\SITAGLIPTIN PHOSPHATE
  6. URSODIOL. [Concomitant]
     Active Substance: URSODIOL
  7. CALCIUM [Concomitant]
     Active Substance: CALCIUM
  8. CEFTRIAXONE. [Concomitant]
     Active Substance: CEFTRIAXONE
     Route: 030
  9. FUROSEMIDE. [Concomitant]
     Active Substance: FUROSEMIDE
  10. FORXIGA [Suspect]
     Active Substance: DAPAGLIFLOZIN
     Indication: TYPE 2 DIABETES MELLITUS
     Route: 048
  11. ROSUVASTATIN. [Suspect]
     Active Substance: ROSUVASTATIN
     Route: 048
  12. AMITRIPTYLINE [Concomitant]
     Active Substance: AMITRIPTYLINE
  13. GABAPENTIN. [Concomitant]
     Active Substance: GABAPENTIN

REACTIONS (11)
  - Blood creatinine increased [Unknown]
  - Cardiac arrest [Unknown]
  - Haematuria [Unknown]
  - Systemic candida [Unknown]
  - Candida test positive [Unknown]
  - Flank pain [Unknown]
  - Urinary tract infection fungal [Unknown]
  - Fungal infection [Unknown]
  - Pyuria [Unknown]
  - Hydronephrosis [Unknown]
  - Endocarditis [Unknown]
